FAERS Safety Report 21482629 (Version 1)
Quarter: 2022Q4

REPORT INFORMATION
  Report Type: Spontaneous
  Country: KR (occurrence: KR)
  Receive Date: 20221020
  Receipt Date: 20221020
  Transmission Date: 20230112
  Serious: Yes (Death, Other)
  Sender: FDA-Public Use
  Company Number: KR-BRISTOL-MYERS SQUIBB COMPANY-2022-124039

PATIENT
  Age: 62 Year
  Sex: Female

DRUGS (4)
  1. OPDIVO [Suspect]
     Active Substance: NIVOLUMAB
     Indication: Lung neoplasm malignant
     Dosage: FREQ : 1ST CYCLE 18-AUG-2022 | 2ND CYCLE 13-SEP-2022
     Route: 042
     Dates: start: 20220818
  2. OPDIVO [Suspect]
     Active Substance: NIVOLUMAB
     Dosage: FREQ : 1ST CYCLE 18-AUG-2022 | 2ND CYCLE 13-SEP-2022
     Route: 042
     Dates: start: 20220913
  3. YERVOY [Suspect]
     Active Substance: IPILIMUMAB
     Indication: Lung neoplasm malignant
     Dosage: FREQ : 1ST CYCLE 18-AUG-2022 | 2ND CYCLE 13-SEP-2022
     Route: 042
     Dates: start: 20220818
  4. YERVOY [Suspect]
     Active Substance: IPILIMUMAB
     Dosage: FREQ : 1ST CYCLE 18-AUG-2022 | 2ND CYCLE 13-SEP-2022
     Route: 042
     Dates: start: 20220913

REACTIONS (1)
  - Death [Fatal]

NARRATIVE: CASE EVENT DATE: 20221003
